FAERS Safety Report 8151695-0 (Version None)
Quarter: 2012Q1

REPORT INFORMATION
  Report Type: 
  Country: None (occurrence: None)
  Receive Date: 20120221
  Receipt Date: 20120209
  Transmission Date: 20120608
  Serious: Yes (Death)
  Sender: FDA-Public Use
  Company Number: JP-AMGEN-JPNSP2012007667

PATIENT
  Age: 68 Year
  Sex: Male

DRUGS (10)
  1. ALENDRONATE SODIUM [Concomitant]
     Dosage: UNK
  2. PROGRAF [Concomitant]
     Dosage: UNK
  3. ENBREL [Suspect]
     Indication: PRODUCT USED FOR UNKNOWN INDICATION
     Dosage: UNK
     Dates: start: 20090601
  4. LASIX [Concomitant]
     Dosage: UNK
  5. DICLOFENAC SODIUM [Concomitant]
     Dosage: UNK
  6. RHEUMATREX [Suspect]
     Dosage: UNK
  7. PREDNISOLONE [Concomitant]
     Dosage: UNK
  8. LANSOPRAZOLE [Concomitant]
     Dosage: UNK
  9. SELBEX [Concomitant]
     Dosage: UNK
  10. FOLIC ACID [Concomitant]
     Dosage: UNK

REACTIONS (1)
  - DEATH [None]
